FAERS Safety Report 9454204 (Version 1)
Quarter: 2013Q3

REPORT INFORMATION
  Report Type: Spontaneous
  Country: DE (occurrence: DE)
  Receive Date: 20130812
  Receipt Date: 20130812
  Transmission Date: 20140515
  Serious: Yes (Hospitalization, Other)
  Sender: FDA-Public Use
  Company Number: DE-ELI_LILLY_AND_COMPANY-DE201308000075

PATIENT
  Sex: Female

DRUGS (8)
  1. HUMALOG 50% LISPRO, 50% NPL [Suspect]
     Indication: DIABETES MELLITUS
     Dosage: UNK UNK, UNKNOWN
     Route: 058
     Dates: end: 201301
  2. HUMINSULIN REGULAR [Suspect]
     Indication: DIABETES MELLITUS
     Dosage: UNK UNK, UNKNOWN
     Route: 058
     Dates: start: 201302
  3. TORASEMIDE [Concomitant]
     Dosage: UNK, UNKNOWN
  4. OMEP                               /00661201/ [Concomitant]
     Dosage: UNK, UNKNOWN
  5. CLOPIDOGREL [Concomitant]
     Dosage: UNK, UNKNOWN
  6. L-THYROXINE                        /00068001/ [Concomitant]
     Dosage: UNK, UNKNOWN
  7. PASPERTIN                          /00041902/ [Concomitant]
     Dosage: UNK, UNKNOWN
  8. SAB SIMPLEX                        /00159501/ [Concomitant]
     Dosage: UNK, UNKNOWN

REACTIONS (6)
  - Cerebrovascular accident [Not Recovered/Not Resolved]
  - Brain injury [Not Recovered/Not Resolved]
  - Aphasia [Not Recovered/Not Resolved]
  - Hemiplegia [Unknown]
  - Vomiting [Not Recovered/Not Resolved]
  - Blood glucose increased [Not Recovered/Not Resolved]
